FAERS Safety Report 23996641 (Version 2)
Quarter: 2024Q3

REPORT INFORMATION
  Report Type: Spontaneous
  Country: US (occurrence: US)
  Receive Date: 20240620
  Receipt Date: 20240705
  Transmission Date: 20241016
  Serious: Yes (Life-Threatening, Hospitalization)
  Sender: TEVA
  Company Number: US-TEVA-VS-3209830

PATIENT
  Age: 67 Year
  Sex: Male

DRUGS (2)
  1. CHLORDIAZEPOXIDE [Suspect]
     Active Substance: CHLORDIAZEPOXIDE
     Indication: Psychomotor hyperactivity
     Route: 065
  2. LORAZEPAM [Suspect]
     Active Substance: LORAZEPAM
     Indication: Psychomotor hyperactivity
     Route: 042

REACTIONS (4)
  - Drug ineffective [Unknown]
  - Pulseless electrical activity [Recovering/Resolving]
  - Respiratory depression [Recovering/Resolving]
  - Cardiac arrest [Recovering/Resolving]
